FAERS Safety Report 9156383 (Version 3)
Quarter: 2013Q1

REPORT INFORMATION
  Report Type: Spontaneous
  Country: DE (occurrence: None)
  Receive Date: 20130208
  Receipt Date: 20130314
  Transmission Date: 20140127
  Serious: Yes (Hospitalization)
  Sender: FDA-Public Use
  Company Number: AUR-APL-2013-01177

PATIENT
  Age: 52 Year
  Sex: Female
  Weight: 60 kg

DRUGS (6)
  1. BISOPROLOL [Suspect]
     Indication: PRODUCT USED FOR UNKNOWN INDICATION
     Dates: start: 20130123, end: 20130123
  2. PANTOZOL [Suspect]
     Indication: PRODUCT USED FOR UNKNOWN INDICATION
     Dates: start: 20130123, end: 20130123
  3. TILIDINE [Suspect]
     Indication: PRODUCT USED FOR UNKNOWN INDICATION
     Dates: start: 20130123, end: 20130123
  4. CLONIDINE [Suspect]
     Indication: PRODUCT USED FOR UNKNOWN INDICATION
     Dates: start: 20130123, end: 20130123
  5. DICLOFENAC (DICLOFENAC) [Suspect]
     Indication: PRODUCT USED FOR UNKNOWN INDICATION
     Dates: start: 20130123, end: 20130123
  6. METOPROLOL (METOPROLOL) [Suspect]
     Indication: PRODUCT USED FOR UNKNOWN INDICATION
     Dates: start: 20130123, end: 20130123

REACTIONS (9)
  - Suicide attempt [None]
  - Fatigue [None]
  - Miosis [None]
  - Body temperature decreased [None]
  - Intentional overdose [None]
  - Bradycardia [None]
  - Hypothermia [None]
  - Vomiting [None]
  - Overdose [None]
